FAERS Safety Report 19767858 (Version 1)
Quarter: 2021Q3

REPORT INFORMATION
  Report Type: Report from Study
  Country: US (occurrence: US)
  Receive Date: 20210830
  Receipt Date: 20210830
  Transmission Date: 20211014
  Serious: No
  Sender: FDA-Public Use
  Company Number: US-KYOWAKIRIN-2021BKK014477

PATIENT

DRUGS (2)
  1. CRYSVITA [Suspect]
     Active Substance: BUROSUMAB-TWZA
     Indication: PHOSPHORUS METABOLISM DISORDER
     Dosage: STRENGTH 20 AND 30 MG/ML COMBINED TO ACHIEVE A DOSE OF 50 MG, Q 4 WEEKS
     Route: 042
     Dates: start: 2020
  2. CRYSVITA [Suspect]
     Active Substance: BUROSUMAB-TWZA
     Indication: PHOSPHORUS METABOLISM DISORDER
     Dosage: STRENGTH 20 AND 30 MG/ML COMBINED TO ACHIEVE A DOSE OF 50 MG, Q 4 WEEKS
     Route: 042
     Dates: start: 2020

REACTIONS (3)
  - COVID-19 [Unknown]
  - Incorrect route of product administration [Not Recovered/Not Resolved]
  - Product use in unapproved indication [Not Recovered/Not Resolved]

NARRATIVE: CASE EVENT DATE: 2020
